FAERS Safety Report 8485957-4 (Version None)
Quarter: 2012Q3

REPORT INFORMATION
  Report Type: 
  Country: None (occurrence: None)
  Receive Date: 20120703
  Receipt Date: 20120425
  Transmission Date: 20120928
  Serious: Yes (Other)
  Sender: FDA-Public Use
  Company Number: FR-BRISTOL-MYERS SQUIBB COMPANY-16553984

PATIENT
  Age: 45 Year
  Sex: Female

DRUGS (4)
  1. EFFEXOR [Concomitant]
  2. ABILIFY [Suspect]
     Indication: PERSONALITY DISORDER
     Dosage: DECRESED TO 5 MG
     Dates: end: 20120101
  3. ABILIFY [Suspect]
     Indication: ANXIETY
     Dosage: DECRESED TO 5 MG
     Dates: end: 20120101
  4. ABILIFY [Suspect]
     Indication: EATING DISORDER
     Dosage: DECRESED TO 5 MG
     Dates: end: 20120101

REACTIONS (2)
  - PARKINSONISM [None]
  - PHLEBITIS [None]
